FAERS Safety Report 8863158 (Version 2)
Quarter: 2012Q4

REPORT INFORMATION
  Report Type: Report from Study
  Country: CO (occurrence: CO)
  Receive Date: 20121026
  Receipt Date: 20121109
  Transmission Date: 20130627
  Serious: Yes (Death, Hospitalization)
  Sender: FDA-Public Use
  Company Number: CO-ROCHE-1148252

PATIENT
  Age: 40 Year
  Sex: Female

DRUGS (2)
  1. METHOXY POLYETHYLENE GLYCOL-EPOETIN BETA [Suspect]
     Indication: NEPHROGENIC ANAEMIA
     Route: 058
     Dates: start: 20120316
  2. WARFARIN [Concomitant]

REACTIONS (3)
  - Cerebrovascular accident [Fatal]
  - Coagulopathy [Fatal]
  - Anaemia [Not Recovered/Not Resolved]
